FAERS Safety Report 10051524 (Version 1)
Quarter: 2014Q2

REPORT INFORMATION
  Report Type: Spontaneous
  Country: US (occurrence: US)
  Receive Date: 20140401
  Receipt Date: 20140401
  Transmission Date: 20141212
  Serious: Yes (Other)
  Sender: FDA-Public Use
  Company Number: US-DSJP-DSU-2014-102830

PATIENT
  Sex: 0

DRUGS (1)
  1. WELCHOL [Suspect]
     Indication: HYPERCHOLESTEROLAEMIA
     Dosage: 1875 MG, BID
     Route: 048
     Dates: start: 201006

REACTIONS (2)
  - Kidney transplant rejection [Not Recovered/Not Resolved]
  - Lymphadenectomy [Recovered/Resolved]
